FAERS Safety Report 22050749 (Version 1)
Quarter: 2023Q1

REPORT INFORMATION
  Report Type: Spontaneous
  Country: US (occurrence: None)
  Receive Date: 20230228
  Receipt Date: 20230228
  Transmission Date: 20230418
  Serious: Yes (Other)
  Sender: FDA-Public Use
  Company Number: None

PATIENT
  Age: 73 Year
  Sex: Female
  Weight: 71.67 kg

DRUGS (1)
  1. PROLIA [Suspect]
     Active Substance: DENOSUMAB
     Indication: Osteoporosis
     Dosage: FREQUENCY : TWICE A DAY;?
     Dates: start: 20220708

REACTIONS (4)
  - Arthralgia [None]
  - Back pain [None]
  - Electric shock sensation [None]
  - Gait disturbance [None]

NARRATIVE: CASE EVENT DATE: 20220708
